FAERS Safety Report 11327847 (Version 2)
Quarter: 2016Q3

REPORT INFORMATION
  Report Type: Report from Study
  Country: US (occurrence: US)
  Receive Date: 20150731
  Receipt Date: 20160823
  Transmission Date: 20161109
  Serious: Yes (Hospitalization, Other)
  Sender: FDA-Public Use
  Company Number: US-BAYER-2014-129099

PATIENT
  Age: 74 Year
  Sex: Male

DRUGS (5)
  1. NEXAVAR [Suspect]
     Active Substance: SORAFENIB
     Indication: METASTASES TO BONE MARROW
     Dosage: 400 MG, QD
     Route: 048
     Dates: start: 201601, end: 2016
  2. NEXAVAR [Suspect]
     Active Substance: SORAFENIB
     Indication: METASTASES TO BONE
     Dosage: 400 MG, BID
     Route: 048
  3. NEXAVAR [Suspect]
     Active Substance: SORAFENIB
     Indication: HEPATOCELLULAR CARCINOMA
     Dosage: 200 MG, QD
     Route: 048
     Dates: start: 20160513
  4. NEXAVAR [Suspect]
     Active Substance: SORAFENIB
     Indication: HEPATOCELLULAR CARCINOMA
     Dosage: 400 MG, BID
     Route: 048
     Dates: start: 20140805
  5. NEXAVAR [Suspect]
     Active Substance: SORAFENIB
     Indication: HEPATOCELLULAR CARCINOMA
     Dosage: 400 MG, BID
     Route: 048
     Dates: start: 2016, end: 2016

REACTIONS (29)
  - Spinal cord compression [Recovering/Resolving]
  - Metastases to spine [Recovering/Resolving]
  - Muscle spasms [Recovering/Resolving]
  - Alopecia [Recovering/Resolving]
  - Rash pruritic [Recovering/Resolving]
  - Dysphonia [Recovering/Resolving]
  - Pain of skin [Recovering/Resolving]
  - Hepatocellular carcinoma [Recovering/Resolving]
  - Pruritus [Recovering/Resolving]
  - Drug dose omission [None]
  - Neuropathy peripheral [Recovering/Resolving]
  - Mobility decreased [Recovering/Resolving]
  - Skin lesion excision [Recovering/Resolving]
  - Stomatitis [Recovering/Resolving]
  - Hypoaesthesia [Recovering/Resolving]
  - Limb discomfort [Recovering/Resolving]
  - Neuralgia [Recovering/Resolving]
  - Rash [Recovering/Resolving]
  - Diarrhoea [Recovering/Resolving]
  - Rash [Recovering/Resolving]
  - Diarrhoea [None]
  - Weight decreased [Recovering/Resolving]
  - Peripheral venous disease [Recovering/Resolving]
  - Pain in extremity [Recovering/Resolving]
  - Blister [Recovering/Resolving]
  - Weight decreased [Recovering/Resolving]
  - Hyperkeratosis [Recovering/Resolving]
  - Dry skin [Recovering/Resolving]
  - Exostosis [Recovering/Resolving]

NARRATIVE: CASE EVENT DATE: 2014
